FAERS Safety Report 23433199 (Version 1)
Quarter: 2024Q1

REPORT INFORMATION
  Report Type: Spontaneous
  Country: US (occurrence: US)
  Receive Date: 20240123
  Receipt Date: 20240123
  Transmission Date: 20240410
  Serious: No
  Sender: FDA-Public Use
  Company Number: US-LANNETT COMPANY, INC.-US-2023LAN000125

PATIENT
  Age: 36 Year
  Sex: Female

DRUGS (2)
  1. DEXTROAMPHET SACCHARAT, AMPHET ASPARTATE, DEXTROAMPHET SULFATE AND AMP [Suspect]
     Active Substance: AMPHETAMINE ASPARTATE\AMPHETAMINE ASPARTATE MONOHYDRATE\AMPHETAMINE SULFATE\DEXTROAMPHETAMINE SACCHA
     Indication: Attention deficit hyperactivity disorder
     Dosage: UNK
     Route: 048
     Dates: start: 202308, end: 202308
  2. DEXTROAMPHET SACCHARAT, AMPHET ASPARTATE, DEXTROAMPHET SULFATE AND AMP [Suspect]
     Active Substance: AMPHETAMINE ASPARTATE\AMPHETAMINE ASPARTATE MONOHYDRATE\AMPHETAMINE SULFATE\DEXTROAMPHETAMINE SACCHA
     Dosage: UNK
     Route: 048
     Dates: start: 202310

REACTIONS (5)
  - Somnolence [Not Recovered/Not Resolved]
  - Withdrawal syndrome [Not Recovered/Not Resolved]
  - Illness [Not Recovered/Not Resolved]
  - Nausea [Not Recovered/Not Resolved]
  - Drug ineffective [Unknown]

NARRATIVE: CASE EVENT DATE: 20230801
